FAERS Safety Report 4434335-3 (Version None)
Quarter: 2004Q3

REPORT INFORMATION
  Report Type: 
  Country: None (occurrence: None)
  Receive Date: 20040826
  Receipt Date: 20021014
  Transmission Date: 20050211
  Serious: Yes (Death)
  Sender: FDA-Public Use
  Company Number: US-MERCK-0210USA01486

PATIENT
  Age: 68 Year
  Sex: Male
  Weight: 105 kg

DRUGS (15)
  1. [THERAPY UNSPECIFIED] [Concomitant]
     Route: 065
  2. TYLENOL [Concomitant]
     Route: 065
  3. PHOSLO [Concomitant]
     Route: 065
  4. DIGOXIN [Concomitant]
     Route: 065
     Dates: start: 20010710, end: 20010801
  5. DIGOXIN [Concomitant]
     Route: 065
     Dates: start: 20010827
  6. DIGOXIN [Concomitant]
     Route: 065
     Dates: end: 20010701
  7. CARDIZEM [Concomitant]
     Indication: MIGRAINE
     Route: 065
  8. EPOGEN [Concomitant]
     Route: 065
  9. LASIX [Concomitant]
     Indication: HYPERTENSION
     Route: 065
  10. APRESOLINE [Concomitant]
     Route: 065
  11. INFED [Concomitant]
     Route: 065
  12. ZEMPLAR [Concomitant]
     Route: 065
  13. VIOXX [Suspect]
     Indication: ARTHRITIS
     Route: 048
     Dates: start: 20010424, end: 20010908
  14. VIOXX [Suspect]
     Indication: ARTHRALGIA
     Route: 048
     Dates: start: 20010424, end: 20010908
  15. TERAZOSIN HYDROCHLORIDE [Concomitant]
     Route: 065

REACTIONS (21)
  - ACUTE MYOCARDIAL INFARCTION [None]
  - ARRHYTHMIA [None]
  - CARDIAC FAILURE CONGESTIVE [None]
  - CEREBROVASCULAR ACCIDENT [None]
  - CHEST PAIN [None]
  - CONDITION AGGRAVATED [None]
  - CONSTIPATION [None]
  - DIZZINESS [None]
  - FEELING ABNORMAL [None]
  - FEELING HOT [None]
  - HYPERHIDROSIS [None]
  - HYPERLIPIDAEMIA [None]
  - HYPERTENSION [None]
  - INGROWING NAIL [None]
  - INJURY [None]
  - MALAISE [None]
  - ONYCHOMYCOSIS [None]
  - PALPITATIONS [None]
  - RENAL FAILURE CHRONIC [None]
  - SKIN LESION [None]
  - URINARY TRACT INFECTION [None]
